FAERS Safety Report 9262702 (Version 1)
Quarter: 2013Q2

REPORT INFORMATION
  Report Type: Spontaneous
  Country: US (occurrence: US)
  Receive Date: 20130430
  Receipt Date: 20130430
  Transmission Date: 20140414
  Serious: No
  Sender: FDA-Public Use
  Company Number: US-PFIZER INC-2013131740

PATIENT
  Age: 86 Year
  Sex: Female
  Weight: 55.33 kg

DRUGS (6)
  1. PROTONIX [Suspect]
     Dosage: UNK
     Dates: start: 20130228
  2. ATENOLOL [Concomitant]
     Dosage: UNK
  3. DILTIAZEM [Concomitant]
     Dosage: UNK
  4. EXELON [Concomitant]
     Indication: DEMENTIA
     Dosage: 9.5 MG, UNK
  5. NAMENDA [Concomitant]
     Indication: DEMENTIA
     Dosage: UNK
  6. URSODIOL [Concomitant]
     Indication: CHOLELITHIASIS
     Dosage: 25 MG, UNK

REACTIONS (2)
  - Wrong technique in drug usage process [Unknown]
  - Agitation [Unknown]
